FAERS Safety Report 7177197-6 (Version None)
Quarter: 2010Q4

REPORT INFORMATION
  Report Type: 
  Country: None (occurrence: None)
  Receive Date: 20101220
  Receipt Date: 20101206
  Transmission Date: 20110411
  Serious: Yes (Other)
  Sender: FDA-Public Use
  Company Number: IN-ROCHE-719957

PATIENT
  Age: 10 Year
  Sex: Male

DRUGS (3)
  1. ACTEMRA [Suspect]
     Dosage: FREQUENCY :1 DOSE
     Route: 042
     Dates: start: 20100729, end: 20100729
  2. NAPROXEN [Concomitant]
     Route: 048
  3. OMNACORTIL [Concomitant]
     Dosage: FREQ-DAILY
     Route: 048

REACTIONS (1)
  - DIPLOPIA [None]
